FAERS Safety Report 25253362 (Version 3)
Quarter: 2025Q3

REPORT INFORMATION
  Report Type: Spontaneous
  Country: EU (occurrence: EU)
  Receive Date: 20250430
  Receipt Date: 20250810
  Transmission Date: 20251021
  Serious: No
  Sender: ALEXION PHARMACEUTICALS
  Company Number: None

PATIENT
  Age: 61 Year
  Sex: Female

DRUGS (1)
  1. TICAGRELOR [Suspect]
     Active Substance: TICAGRELOR
     Indication: Acute coronary syndrome
     Dosage: 1/JOUR
     Dates: start: 20240719, end: 20250325

REACTIONS (1)
  - Spontaneous haematoma [Recovered/Resolved]

NARRATIVE: CASE EVENT DATE: 20250101
